FAERS Safety Report 9859788 (Version 1)
Quarter: 2014Q1

REPORT INFORMATION
  Report Type: Spontaneous
  Country: US (occurrence: US)
  Receive Date: 20140131
  Receipt Date: 20140131
  Transmission Date: 20141002
  Serious: No
  Sender: FDA-Public Use
  Company Number: US-PFIZER INC-2014028368

PATIENT
  Age: 65 Year
  Sex: Female

DRUGS (2)
  1. LYRICA [Suspect]
     Indication: ANXIETY
     Dosage: 75 MG, UNK
  2. LYRICA [Suspect]
     Indication: PAIN IN EXTREMITY
     Dosage: 200 MG, UNK

REACTIONS (4)
  - Off label use [Unknown]
  - Drug ineffective [Unknown]
  - Somnolence [Unknown]
  - Depressed mood [Unknown]
